FAERS Safety Report 20979709 (Version 6)
Quarter: 2022Q3

REPORT INFORMATION
  Report Type: Spontaneous
  Country: US (occurrence: US)
  Receive Date: 20220620
  Receipt Date: 20220829
  Transmission Date: 20221026
  Serious: Yes (Other)
  Sender: FDA-Public Use
  Company Number: US-CELGENE-USA-20220200480

PATIENT
  Age: 92 Year
  Sex: Female

DRUGS (5)
  1. REVLIMID [Suspect]
     Active Substance: LENALIDOMIDE
     Indication: Breast cancer
     Dosage: TAKE 1 CAPSULE BY MOUTH EVERY OTHER DAY FOR 21 DAYS , THEN OFF FOR 7 DAYS OFF
     Route: 048
  2. REVLIMID [Suspect]
     Active Substance: LENALIDOMIDE
     Indication: Plasma cell myeloma
     Dosage: TAKE 1 CAPSULE BY MOUTH EVERY OTHER DAY FOR 21 DAYS , THEN OFF FOR 7 DAYS OF EACH 28 DAY CYCLE.
     Route: 048
     Dates: start: 20210924
  3. REVLIMID [Suspect]
     Active Substance: LENALIDOMIDE
     Dosage: FREQUENCY:  EVERY OTHER DAY FOR 21 DAYS AND THEN 7 DAYS OFF AS DIRECTED.
     Route: 048
     Dates: start: 20210924
  4. REVLIMID [Suspect]
     Active Substance: LENALIDOMIDE
     Dosage: TAKE 1 CAPSULE BY MOUTH EVERY OTHER DAY FOR 21 DAYS AND THEN 7 DAYS OFF AS DIRECTED.
     Route: 048
  5. REVLIMID [Suspect]
     Active Substance: LENALIDOMIDE
     Dosage: TAKE 1 CAPSULE BY MOUTH EVERY OTHER DAY FOR 21 DAYS AND THEN 7 DAYS OFF AS DIRECTED.
     Route: 048
     Dates: start: 20210927

REACTIONS (10)
  - Urinary tract infection [Unknown]
  - Colitis [Unknown]
  - Localised oedema [Not Recovered/Not Resolved]
  - Nausea [Not Recovered/Not Resolved]
  - Pain in extremity [Unknown]
  - Product dose omission issue [Unknown]
  - Intentional product use issue [Unknown]
  - Gastrointestinal infection [Unknown]
  - Oral pain [Unknown]
  - Rash [Unknown]
